FAERS Safety Report 13955977 (Version 1)
Quarter: 2017Q3

REPORT INFORMATION
  Report Type: Spontaneous
  Country: DE (occurrence: DE)
  Receive Date: 20170911
  Receipt Date: 20170911
  Transmission Date: 20171128
  Serious: Yes (Other)
  Sender: FDA-Public Use
  Company Number: DE-HERITAGE PHARMACEUTICALS-2017HTG00254

PATIENT
  Age: 79 Year
  Sex: Female

DRUGS (1)
  1. LEFLUNOMIDE. [Suspect]
     Active Substance: LEFLUNOMIDE
     Indication: RHEUMATOID ARTHRITIS
     Dosage: 20 MG, 1X/DAY
     Route: 065

REACTIONS (3)
  - Cryptococcosis [Recovering/Resolving]
  - Infected skin ulcer [Recovering/Resolving]
  - Pulmonary mass [Recovering/Resolving]
